FAERS Safety Report 5907998-0 (Version None)
Quarter: 2008Q4

REPORT INFORMATION
  Report Type: 
  Country: None (occurrence: None)
  Receive Date: 20081003
  Receipt Date: 20080929
  Transmission Date: 20090506
  Serious: No
  Sender: FDA-Public Use
  Company Number: US-B.I. PHARMACEUTICALS,INC./RIDGEFIELD-2008-BP-14181BP

PATIENT
  Sex: Female

DRUGS (9)
  1. CATAPRES-TTS-1 [Suspect]
     Indication: HYPERTENSION
     Dosage: .1MG
     Route: 062
     Dates: start: 20070101, end: 20080201
  2. CATAPRES-TTS-1 [Suspect]
     Route: 062
     Dates: start: 20080201
  3. COUMADIN [Concomitant]
     Indication: COAGULOPATHY
     Dates: start: 20070101
  4. NEXIUM [Concomitant]
     Indication: GASTROOESOPHAGEAL REFLUX DISEASE
  5. SINGULAIR [Concomitant]
     Indication: COUGH
  6. ALBUTEROL [Concomitant]
     Indication: MULTIPLE ALLERGIES
  7. AMBIEN [Concomitant]
     Indication: SLEEP DISORDER
  8. LYRICA [Concomitant]
     Indication: NEUROMA
  9. WELCOL [Concomitant]
     Indication: CONSTIPATION

REACTIONS (3)
  - BURNING SENSATION [None]
  - PRURITUS [None]
  - RASH [None]
